FAERS Safety Report 18913869 (Version 1)
Quarter: 2021Q1

REPORT INFORMATION
  Report Type: Spontaneous
  Country: DE (occurrence: DE)
  Receive Date: 20210219
  Receipt Date: 20210219
  Transmission Date: 20210420
  Serious: Yes (Death, Life-Threatening, Other)
  Sender: FDA-Public Use
  Company Number: DE-ACCORD-217239

PATIENT
  Age: 38 Year
  Sex: Male

DRUGS (8)
  1. MITOMYCIN. [Suspect]
     Active Substance: MITOMYCIN
     Indication: MIXED HEPATOCELLULAR CHOLANGIOCARCINOMA
     Route: 013
     Dates: start: 2014
  2. CISPLATIN. [Suspect]
     Active Substance: CISPLATIN
     Indication: MIXED HEPATOCELLULAR CHOLANGIOCARCINOMA
     Route: 013
     Dates: start: 2014
  3. PHYTOMENADIONE [Concomitant]
     Active Substance: PHYTONADIONE
     Indication: RASH PUSTULAR
     Route: 061
     Dates: start: 2014
  4. DOXORUBICIN [Suspect]
     Active Substance: DOXORUBICIN
     Indication: MIXED HEPATOCELLULAR CHOLANGIOCARCINOMA
     Dosage: TACE
     Route: 013
     Dates: start: 2014
  5. GEMCITABINE/GEMCITABINE HYDROCHLORIDE [Suspect]
     Active Substance: GEMCITABINE\GEMCITABINE HYDROCHLORIDE
     Indication: MIXED HEPATOCELLULAR CHOLANGIOCARCINOMA
     Dates: start: 2014
  6. PANITUMUMAB [Suspect]
     Active Substance: PANITUMUMAB
     Indication: MIXED HEPATOCELLULAR CHOLANGIOCARCINOMA
     Dates: start: 2014
  7. MINOCYCLINE [Concomitant]
     Active Substance: MINOCYCLINE HYDROCHLORIDE
     Indication: RASH PUSTULAR
     Route: 048
     Dates: start: 2014
  8. CISPLATIN. [Suspect]
     Active Substance: CISPLATIN
     Indication: MIXED HEPATOCELLULAR CHOLANGIOCARCINOMA
     Dosage: TACE
     Route: 013
     Dates: start: 2014

REACTIONS (3)
  - Neutropenia [Recovered/Resolved]
  - Off label use [Unknown]
  - Thrombocytopenia [Recovered/Resolved]

NARRATIVE: CASE EVENT DATE: 2014
